FAERS Safety Report 13208934 (Version 1)
Quarter: 2017Q1

REPORT INFORMATION
  Report Type: Spontaneous
  Country: US (occurrence: US)
  Receive Date: 20170209
  Receipt Date: 20170209
  Transmission Date: 20170428
  Serious: No
  Sender: FDA-Public Use
  Company Number: US-ROCHE-1695816

PATIENT
  Sex: Male

DRUGS (13)
  1. PRAVASTATIN. [Concomitant]
     Active Substance: PRAVASTATIN
  2. ADVAIR HFA [Concomitant]
     Active Substance: FLUTICASONE PROPIONATE\SALMETEROL XINAFOATE
  3. LANTUS [Concomitant]
     Active Substance: INSULIN GLARGINE
  4. LOSARTAN. [Concomitant]
     Active Substance: LOSARTAN
  5. ALBUTEROL. [Concomitant]
     Active Substance: ALBUTEROL
  6. PREDNISONE. [Concomitant]
     Active Substance: PREDNISONE
  7. XOLAIR [Suspect]
     Active Substance: OMALIZUMAB
     Indication: PRODUCT USED FOR UNKNOWN INDICATION
     Route: 030
  8. HYDROCODONE [Concomitant]
     Active Substance: HYDROCODONE
  9. HUMALOG [Concomitant]
     Active Substance: INSULIN LISPRO
  10. METFORMIN [Concomitant]
     Active Substance: METFORMIN HYDROCHLORIDE
     Route: 065
  11. MINOXIDIL. [Concomitant]
     Active Substance: MINOXIDIL
  12. AMLODIPINE [Concomitant]
     Active Substance: AMLODIPINE BESYLATE
  13. AMBIEN [Concomitant]
     Active Substance: ZOLPIDEM TARTRATE

REACTIONS (1)
  - Musculoskeletal pain [Unknown]
